FAERS Safety Report 4413489-9 (Version None)
Quarter: 2004Q3

REPORT INFORMATION
  Report Type: 
  Country: None (occurrence: None)
  Receive Date: 20040728
  Receipt Date: 20040712
  Transmission Date: 20050211
  Serious: Yes (Other)
  Sender: FDA-Public Use
  Company Number: 2004040068

PATIENT
  Sex: Male

DRUGS (2)
  1. NEURONTIN [Suspect]
     Indication: BIPOLAR DISORDER
     Dosage: 2300 MG (1 IN 1 D),
     Dates: start: 19980101
  2. NEURONTIN [Suspect]
     Indication: SCHIZOAFFECTIVE DISORDER
     Dosage: 2300 MG (1 IN 1 D),
     Dates: start: 19980101

REACTIONS (10)
  - ASTHENIA [None]
  - CARDIAC DISORDER [None]
  - CHEST PAIN [None]
  - CIRCULATORY COLLAPSE [None]
  - CONVULSION [None]
  - DIZZINESS [None]
  - HEADACHE [None]
  - LOSS OF CONSCIOUSNESS [None]
  - OVERDOSE [None]
  - SOMATIC DELUSION [None]
